FAERS Safety Report 13794789 (Version 3)
Quarter: 2017Q3

REPORT INFORMATION
  Report Type: Spontaneous
  Country: US (occurrence: US)
  Receive Date: 20170726
  Receipt Date: 20170928
  Transmission Date: 20171127
  Serious: Yes (Death, Hospitalization, Other)
  Sender: FDA-Public Use
  Company Number: US-BAUSCH-BL-2017-021909

PATIENT
  Age: 75 Year
  Sex: Male

DRUGS (2)
  1. PROVENGE [Suspect]
     Active Substance: SIPULEUCEL-T
     Indication: PROSTATE CANCER
     Route: 042
     Dates: start: 20170706, end: 20170706
  2. PROVENGE [Suspect]
     Active Substance: SIPULEUCEL-T
     Route: 042
     Dates: start: 20170803, end: 20170803

REACTIONS (5)
  - Sepsis [Unknown]
  - Metabolic acidosis [Fatal]
  - Multiple organ dysfunction syndrome [Unknown]
  - Deep vein thrombosis [Unknown]
  - Mononuclear cell count abnormal [Unknown]

NARRATIVE: CASE EVENT DATE: 2017
